FAERS Safety Report 6190839-7 (Version None)
Quarter: 2009Q2

REPORT INFORMATION
  Report Type: 
  Country: None (occurrence: None)
  Receive Date: 20090514
  Receipt Date: 20090504
  Transmission Date: 20091009
  Serious: Yes (Other)
  Sender: FDA-Public Use
  Company Number: DE-BAXTER-2009BH008310

PATIENT
  Sex: Male

DRUGS (1)
  1. FEIBA VH IMMUNO [Suspect]
     Indication: FACTOR IX DEFICIENCY
     Route: 065

REACTIONS (2)
  - HYPERSENSITIVITY [None]
  - HYPOVOLAEMIC SHOCK [None]
